FAERS Safety Report 21671400 (Version 6)
Quarter: 2023Q2

REPORT INFORMATION
  Report Type: Report from Study
  Country: CA (occurrence: CA)
  Receive Date: 20221202
  Receipt Date: 20230501
  Transmission Date: 20230722
  Serious: Yes (Hospitalization, Other)
  Sender: FDA-Public Use
  Company Number: CA-ABBVIE-4220576

PATIENT
  Age: 80 Year
  Sex: Male

DRUGS (3)
  1. LUPRON [Suspect]
     Active Substance: LEUPROLIDE ACETATE
     Indication: Prostate cancer
     Route: 030
     Dates: start: 20211129
  2. LUPRON [Suspect]
     Active Substance: LEUPROLIDE ACETATE
  3. LUPRON [Suspect]
     Active Substance: LEUPROLIDE ACETATE
     Route: 030

REACTIONS (14)
  - Urinary tract infection [Unknown]
  - SARS-CoV-2 test positive [Unknown]
  - Hospitalisation [Unknown]
  - Device related infection [Recovering/Resolving]
  - Constipation [Unknown]
  - Deep vein thrombosis [Unknown]
  - Hepatic steatosis [Unknown]
  - Thrombosis in device [Unknown]
  - Device occlusion [Recovered/Resolved]
  - Type 2 diabetes mellitus [Unknown]
  - Benign prostatic hyperplasia [Unknown]
  - Urinary retention [Unknown]
  - Blood urine present [Unknown]
  - Suprapubic pain [Recovered/Resolved]

NARRATIVE: CASE EVENT DATE: 20230324
